FAERS Safety Report 9680741 (Version 1)
Quarter: 2013Q4

REPORT INFORMATION
  Report Type: Spontaneous
  Country: US (occurrence: US)
  Receive Date: 20131111
  Receipt Date: 20131111
  Transmission Date: 20140711
  Serious: Yes (Other)
  Sender: FDA-Public Use
  Company Number: PHEH2013US022986

PATIENT
  Age: 87 Year
  Sex: Male

DRUGS (2)
  1. TASIGNA [Suspect]
     Indication: CHRONIC LYMPHOCYTIC LEUKAEMIA
     Dosage: UNK
     Dates: start: 201304
  2. TASIGNA [Suspect]
     Dosage: DOSE REDUCED

REACTIONS (5)
  - Deafness [Unknown]
  - Visual impairment [Unknown]
  - Full blood count decreased [Unknown]
  - Pancreatitis [Unknown]
  - Headache [Unknown]
